FAERS Safety Report 24913036 (Version 1)
Quarter: 2025Q1

REPORT INFORMATION
  Report Type: Spontaneous
  Country: CN (occurrence: CN)
  Receive Date: 20250201
  Receipt Date: 20250201
  Transmission Date: 20250409
  Serious: Yes (Hospitalization)
  Sender: BEIGENE
  Company Number: CN-BEIGENE-BGN-2025-001270

PATIENT
  Age: 79 Year
  Weight: 59.5 kg

DRUGS (3)
  1. TISLELIZUMAB [Suspect]
     Active Substance: TISLELIZUMAB
     Indication: Gastrooesophageal cancer
     Dosage: 200 MILLIGRAM, Q3WK, D1
  2. DOCETAXEL [Suspect]
     Active Substance: DOCETAXEL
     Indication: Gastrooesophageal cancer
     Dosage: 110 MILLIGRAM, Q3WK, D1
  3. NEDAPLATIN [Suspect]
     Active Substance: NEDAPLATIN
     Indication: Gastrooesophageal cancer
     Dosage: 90 MILLIGRAM, Q3WK, D1

REACTIONS (1)
  - Myelosuppression [Recovering/Resolving]
